FAERS Safety Report 9851168 (Version 1)
Quarter: 2014Q1

REPORT INFORMATION
  Report Type: Spontaneous
  Country: US (occurrence: US)
  Receive Date: 20140128
  Receipt Date: 20140128
  Transmission Date: 20141002
  Serious: No
  Sender: FDA-Public Use
  Company Number: US-SANOFI-AVENTIS-2013SA063072

PATIENT
  Age: 52 Year
  Sex: Female

DRUGS (3)
  1. LASIX [Suspect]
     Indication: PERICARDIAL EFFUSION
     Route: 065
  2. REVATIO [Suspect]
     Indication: PULMONARY HYPERTENSION
     Dates: start: 201207
  3. ALL OTHER THERAPEUTIC PRODUCTS [Suspect]
     Route: 065

REACTIONS (5)
  - Dyspnoea [Not Recovered/Not Resolved]
  - Alopecia [Unknown]
  - Swollen tongue [Unknown]
  - Malaise [Not Recovered/Not Resolved]
  - Drug ineffective [Unknown]
